FAERS Safety Report 6645293-5 (Version None)
Quarter: 2010Q1

REPORT INFORMATION
  Report Type: 
  Country: None (occurrence: None)
  Receive Date: 20100322
  Receipt Date: 20100312
  Transmission Date: 20100710
  Serious: Yes (Hospitalization)
  Sender: FDA-Public Use
  Company Number: US-ABBOTT-10P-163-0632300-00

PATIENT
  Sex: Female

DRUGS (2)
  1. HUMIRA [Suspect]
     Indication: CROHN'S DISEASE
     Dosage: LOADING DOSE
     Route: 058
  2. HUMIRA [Suspect]
     Indication: FISTULA
     Route: 058
     Dates: end: 20090601

REACTIONS (2)
  - ABDOMINAL PAIN [None]
  - OBSTRUCTION GASTRIC [None]
